FAERS Safety Report 14539873 (Version 3)
Quarter: 2018Q1

REPORT INFORMATION
  Report Type: Spontaneous
  Country: HU (occurrence: HU)
  Receive Date: 20180216
  Receipt Date: 20180319
  Transmission Date: 20180509
  Serious: Yes (Other)
  Sender: FDA-Public Use
  Company Number: PHHY2018HU025178

PATIENT
  Age: 81 Year
  Sex: Male

DRUGS (2)
  1. LOPERAMIDE [Suspect]
     Active Substance: LOPERAMIDE
     Indication: DIARRHOEA
     Dosage: UNK
     Route: 065
     Dates: start: 2006
  2. IMATINIB [Suspect]
     Active Substance: IMATINIB
     Indication: SYSTEMIC MASTOCYTOSIS
     Dosage: 50 MG, QD
     Route: 065
     Dates: start: 2010, end: 201009

REACTIONS (2)
  - Therapy non-responder [Unknown]
  - Hydrothorax [Unknown]

NARRATIVE: CASE EVENT DATE: 201009
